FAERS Safety Report 4379558-7 (Version None)
Quarter: 2004Q2

REPORT INFORMATION
  Report Type: 
  Country: None (occurrence: None)
  Receive Date: 20040614
  Receipt Date: 20040606
  Transmission Date: 20050107
  Serious: Yes (Hospitalization)
  Sender: FDA-Public Use
  Company Number: 0104-1688

PATIENT
  Age: 67 Year
  Sex: Male
  Weight: 113.3993 kg

DRUGS (3)
  1. ADVICOR [Suspect]
     Indication: BLOOD CHOLESTEROL ABNORMAL
     Dosage: 1 TABLET (S) QHS PO
     Route: 048
  2. ASPIRIN [Concomitant]
  3. QUININE [Concomitant]

REACTIONS (2)
  - FLUSHING [None]
  - SYNCOPE [None]
